FAERS Safety Report 11100588 (Version 1)
Quarter: 2015Q2

REPORT INFORMATION
  Report Type: Spontaneous
  Country: US (occurrence: US)
  Receive Date: 20150508
  Receipt Date: 20150508
  Transmission Date: 20150821
  Serious: Yes (Hospitalization, Other)
  Sender: FDA-Public Use
  Company Number: US-ABBVIE-15P-163-1385476-00

PATIENT
  Age: 75 Year
  Sex: Male
  Weight: 66 kg

DRUGS (8)
  1. COREG CR [Interacting]
     Active Substance: CARVEDILOL PHOSPHATE
     Route: 048
     Dates: start: 20150427
  2. NIFEDIPINE. [Interacting]
     Active Substance: NIFEDIPINE
     Indication: HYPERTENSION
     Route: 048
     Dates: end: 20150426
  3. ASPIRIN. [Concomitant]
     Active Substance: ASPIRIN
     Indication: PRODUCT USED FOR UNKNOWN INDICATION
     Route: 048
  4. VITAMIN D [Concomitant]
     Active Substance: CHOLECALCIFEROL
     Indication: PRODUCT USED FOR UNKNOWN INDICATION
  5. VIEKIRA PAK [Suspect]
     Active Substance: DASABUVIR\OMBITASVIR\PARITAPREVIR\RITONAVIR
     Indication: HEPATITIS C VIRUS TEST POSITIVE
     Dosage: 3 AND 1
     Route: 048
     Dates: start: 20150401, end: 20150402
  6. VIEKIRA PAK [Interacting]
     Active Substance: DASABUVIR\OMBITASVIR\PARITAPREVIR\RITONAVIR
     Route: 048
     Dates: start: 20150425, end: 20150425
  7. COREG CR [Interacting]
     Active Substance: CARVEDILOL PHOSPHATE
     Indication: HYPERTENSION
     Route: 048
     Dates: end: 20150426
  8. NIFEDIPINE. [Interacting]
     Active Substance: NIFEDIPINE
     Route: 048
     Dates: start: 20150427

REACTIONS (6)
  - White blood cell count increased [Recovered/Resolved]
  - Hypotension [Recovered/Resolved]
  - Pneumonia [Recovered/Resolved]
  - Drug interaction [Unknown]
  - Withdrawal hypertension [Recovered/Resolved]
  - Pyrexia [Recovered/Resolved]

NARRATIVE: CASE EVENT DATE: 201504
